FAERS Safety Report 7329377-4 (Version None)
Quarter: 2011Q1

REPORT INFORMATION
  Report Type: 
  Country: None (occurrence: None)
  Receive Date: 20110303
  Receipt Date: 20110228
  Transmission Date: 20110831
  Serious: Yes (Death)
  Sender: FDA-Public Use
  Company Number: JP-PFIZER INC-2011043399

PATIENT
  Age: 33 Year
  Sex: Male

DRUGS (5)
  1. ZOLOFT [Suspect]
     Dosage: UNK
     Route: 048
     Dates: start: 20090401
  2. MEILAX [Concomitant]
     Dosage: UNK
  3. RESLIN [Concomitant]
     Dosage: UNK
  4. PAXIL [Concomitant]
     Dosage: UNK
  5. MYSLEE [Concomitant]
     Dosage: UNK

REACTIONS (1)
  - DEATH [None]
